FAERS Safety Report 15760261 (Version 1)
Quarter: 2018Q4

REPORT INFORMATION
  Report Type: Spontaneous
  Country: CZ (occurrence: CZ)
  Receive Date: 20181226
  Receipt Date: 20181226
  Transmission Date: 20190205
  Serious: Yes (Life-Threatening, Other)
  Sender: FDA-Public Use
  Company Number: CZ-LUPIN PHARMACEUTICALS INC.-2018-08979

PATIENT
  Age: 52 Year
  Sex: Female

DRUGS (1)
  1. LEVONORGESTREL. [Suspect]
     Active Substance: LEVONORGESTREL
     Indication: CONTRACEPTION
     Dosage: UNK (LEVONORGESTREL-RELEASING INTRAUTERINE SYSTEM)
     Route: 015

REACTIONS (1)
  - Endometrial adenocarcinoma [Recovering/Resolving]
